FAERS Safety Report 18265266 (Version 5)
Quarter: 2022Q1

REPORT INFORMATION
  Report Type: Spontaneous
  Country: CA (occurrence: CA)
  Receive Date: 20200915
  Receipt Date: 20220125
  Transmission Date: 20220423
  Serious: Yes (Other)
  Sender: FDA-Public Use
  Company Number: CA-TEVA-2020-CA-1188904

PATIENT
  Age: 69 Year
  Sex: Female

DRUGS (54)
  1. AZITHROMYCIN [Suspect]
     Active Substance: AZITHROMYCIN
     Indication: Product used for unknown indication
     Dosage: 250 MILLIGRAM DAILY;
     Route: 065
  2. PREDNISONE [Suspect]
     Active Substance: PREDNISONE
     Indication: Product used for unknown indication
     Route: 065
  3. HYDROXYZINE [Suspect]
     Active Substance: HYDROXYZINE HYDROCHLORIDE
     Indication: Product used for unknown indication
     Route: 065
  4. CALCIUM [Suspect]
     Active Substance: CALCIUM
     Indication: Product used for unknown indication
     Route: 065
  5. CALCIUM CARBONATE [Suspect]
     Active Substance: CALCIUM CARBONATE
     Indication: Product used for unknown indication
     Route: 065
  6. FLUTICASONE PROPIONATE\SALMETEROL XINAFOATE [Suspect]
     Active Substance: FLUTICASONE PROPIONATE\SALMETEROL XINAFOATE
     Indication: Product used for unknown indication
     Dosage: 4 DOSAGE FORMS DAILY;
     Route: 055
  7. FLUTICASONE PROPIONATE\SALMETEROL XINAFOATE [Suspect]
     Active Substance: FLUTICASONE PROPIONATE\SALMETEROL XINAFOATE
     Route: 055
  8. PANTOPRAZOLE SODIUM ANHYDROUS [Suspect]
     Active Substance: PANTOPRAZOLE SODIUM ANHYDROUS
     Indication: Product used for unknown indication
     Dosage: 40 MILLIGRAM DAILY;
     Route: 065
  9. PANTOPRAZOLE SODIUM ANHYDROUS [Suspect]
     Active Substance: PANTOPRAZOLE SODIUM ANHYDROUS
     Dosage: 40 MILLIGRAM DAILY;
     Route: 065
  10. ZOPICLONE [Suspect]
     Active Substance: ZOPICLONE
     Indication: Product used for unknown indication
     Dosage: 5 MILLIGRAM DAILY;
     Route: 065
  11. ZOPICLONE [Suspect]
     Active Substance: ZOPICLONE
     Dosage: 5 MILLIGRAM DAILY;
     Route: 065
  12. ALBUTEROL SULFATE [Suspect]
     Active Substance: ALBUTEROL SULFATE
     Indication: Product used for unknown indication
     Route: 065
  13. ALBUTEROL SULFATE [Suspect]
     Active Substance: ALBUTEROL SULFATE
     Route: 055
  14. ALVESCO [Suspect]
     Active Substance: CICLESONIDE
     Indication: Product used for unknown indication
     Dosage: 400 MILLIGRAM DAILY;
     Route: 065
  15. ALVESCO [Suspect]
     Active Substance: CICLESONIDE
     Dosage: 600 MICROGRAM DAILY;
     Route: 065
  16. ALVESCO [Suspect]
     Active Substance: CICLESONIDE
     Dosage: 400 MILLIGRAM DAILY;
     Route: 065
  17. ALVESCO [Suspect]
     Active Substance: CICLESONIDE
     Dosage: 600 MILLIGRAM DAILY;
     Route: 065
  18. ALVESCO [Suspect]
     Active Substance: CICLESONIDE
     Dosage: 400 MICROGRAM DAILY;
     Route: 055
  19. ALVESCO [Suspect]
     Active Substance: CICLESONIDE
     Dosage: 600 MICROGRAM DAILY;
     Route: 065
  20. ALVESCO [Suspect]
     Active Substance: CICLESONIDE
     Route: 065
  21. ALVESCO [Suspect]
     Active Substance: CICLESONIDE
     Dosage: 400 MILLIGRAM DAILY;
     Route: 065
  22. ALVESCO [Suspect]
     Active Substance: CICLESONIDE
     Dosage: 600 MILLIGRAM DAILY;
     Route: 065
  23. BENRALIZUMAB [Suspect]
     Active Substance: BENRALIZUMAB
     Indication: Asthma
     Route: 042
  24. BENRALIZUMAB [Suspect]
     Active Substance: BENRALIZUMAB
     Route: 042
  25. CELEBREX [Suspect]
     Active Substance: CELECOXIB
     Indication: Product used for unknown indication
     Route: 065
  26. CELEBREX [Suspect]
     Active Substance: CELECOXIB
     Route: 065
  27. CELEBREX [Suspect]
     Active Substance: CELECOXIB
     Route: 065
  28. CHLORPHENIRAMINE MALEATE\PSEUDOEPHEDRINE HYDROCHLORIDE [Suspect]
     Active Substance: CHLORPHENIRAMINE MALEATE\PSEUDOEPHEDRINE HYDROCHLORIDE
     Indication: Product used for unknown indication
     Route: 065
  29. ROFLUMILAST [Suspect]
     Active Substance: ROFLUMILAST
     Indication: Pseudomonas infection
     Dosage: 500 MICROGRAM DAILY;
  30. ROFLUMILAST [Suspect]
     Active Substance: ROFLUMILAST
     Indication: Product used for unknown indication
     Dosage: 100 MICROGRAM DAILY;
  31. ROFLUMILAST [Suspect]
     Active Substance: ROFLUMILAST
     Dosage: 500 MICROGRAM DAILY;
     Route: 048
  32. ROFLUMILAST [Suspect]
     Active Substance: ROFLUMILAST
     Dosage: 1000 MICROGRAM DAILY;
     Route: 048
  33. IMODIUM [Suspect]
     Active Substance: LOPERAMIDE HYDROCHLORIDE
     Indication: Product used for unknown indication
     Route: 065
  34. OMALIZUMAB [Suspect]
     Active Substance: OMALIZUMAB
     Indication: Product used for unknown indication
     Route: 065
  35. OMALIZUMAB [Suspect]
     Active Substance: OMALIZUMAB
     Route: 065
  36. OMALIZUMAB [Suspect]
     Active Substance: OMALIZUMAB
     Route: 065
  37. OMALIZUMAB [Suspect]
     Active Substance: OMALIZUMAB
     Route: 065
  38. AZITHROMYCIN ANHYDROUS [Suspect]
     Active Substance: AZITHROMYCIN ANHYDROUS
     Indication: Product used for unknown indication
     Dosage: 250 MILLIGRAM DAILY;
     Route: 065
  39. SINGULAIR [Suspect]
     Active Substance: MONTELUKAST SODIUM
     Indication: Product used for unknown indication
     Dosage: 10 MILLIGRAM DAILY;
     Route: 065
  40. SINGULAIR [Suspect]
     Active Substance: MONTELUKAST SODIUM
     Dosage: 10 MILLIGRAM DAILY;
     Route: 065
  41. SPIRIVA [Suspect]
     Active Substance: TIOTROPIUM BROMIDE MONOHYDRATE
     Indication: Product used for unknown indication
     Dosage: 2 DOSAGE FORMS DAILY;
     Route: 055
  42. SPIRIVA [Suspect]
     Active Substance: TIOTROPIUM BROMIDE MONOHYDRATE
     Route: 055
  43. SPIRIVA [Suspect]
     Active Substance: TIOTROPIUM BROMIDE MONOHYDRATE
     Route: 055
  44. SPIRIVA [Suspect]
     Active Substance: TIOTROPIUM BROMIDE MONOHYDRATE
     Route: 055
  45. SPIRIVA [Suspect]
     Active Substance: TIOTROPIUM BROMIDE MONOHYDRATE
     Dosage: 2.5 MICROGRAM DAILY;
     Route: 055
  46. VENTOLIN [Suspect]
     Active Substance: ALBUTEROL SULFATE
     Indication: Product used for unknown indication
     Route: 065
  47. VENTOLIN [Suspect]
     Active Substance: ALBUTEROL SULFATE
     Route: 055
  48. VENTOLIN [Suspect]
     Active Substance: ALBUTEROL SULFATE
     Route: 055
  49. VITAMIN D [Suspect]
     Active Substance: VITAMIN D NOS
     Indication: Product used for unknown indication
     Route: 065
  50. VITAMIN D3 [Suspect]
     Active Substance: CHOLECALCIFEROL
     Indication: Product used for unknown indication
     Route: 065
  51. VITAMIN D3 [Suspect]
     Active Substance: CHOLECALCIFEROL
     Route: 065
  52. FLUTICASONE PROPIONATE\SALMETEROL XINAFOATE [Suspect]
     Active Substance: FLUTICASONE PROPIONATE\SALMETEROL XINAFOATE
     Indication: Product used for unknown indication
     Route: 055
  53. FLUTICASONE PROPIONATE\SALMETEROL XINAFOATE [Suspect]
     Active Substance: FLUTICASONE PROPIONATE\SALMETEROL XINAFOATE
     Route: 055
  54. FLUTICASONE PROPIONATE\SALMETEROL XINAFOATE [Suspect]
     Active Substance: FLUTICASONE PROPIONATE\SALMETEROL XINAFOATE
     Route: 055

REACTIONS (23)
  - Asthma [Unknown]
  - Bacterial disease carrier [Unknown]
  - Full blood count abnormal [Unknown]
  - Bronchial secretion retention [Unknown]
  - Bronchial wall thickening [Unknown]
  - Cough [Unknown]
  - Dyspnoea [Unknown]
  - Dyspnoea [Unknown]
  - Fall [Unknown]
  - Ill-defined disorder [Unknown]
  - Intervertebral disc protrusion [Unknown]
  - Obstructive airways disorder [Unknown]
  - Rales [Unknown]
  - Spinal cord compression [Unknown]
  - Sputum discoloured [Unknown]
  - Upper limb fracture [Unknown]
  - Wheezing [Unknown]
  - Wrist fracture [Unknown]
  - Malaise [Unknown]
  - Condition aggravated [Unknown]
  - Full blood count abnormal [Unknown]
  - Drug ineffective [Unknown]
  - Therapeutic product effect incomplete [Unknown]
